FAERS Safety Report 7472517-7 (Version None)
Quarter: 2011Q2

REPORT INFORMATION
  Report Type: 
  Country: None (occurrence: None)
  Receive Date: 20110511
  Receipt Date: 20110503
  Transmission Date: 20111010
  Serious: Yes (Other)
  Sender: FDA-Public Use
  Company Number: GB-TEVA-279693ISR

PATIENT
  Age: 89 Year
  Sex: Male
  Weight: 54 kg

DRUGS (3)
  1. ACETAMINOPHEN [Suspect]
     Indication: ANALGESIC THERAPY
     Dosage: 4 GRAM;
  2. WARFARIN SODIUM [Suspect]
     Indication: PRODUCT USED FOR UNKNOWN INDICATION
  3. VENTAVIS [Suspect]
     Indication: PERIPHERAL ISCHAEMIA
     Dosage: 50 MICROGRAM;
     Route: 042

REACTIONS (2)
  - DRUG INTERACTION [None]
  - INTERNATIONAL NORMALISED RATIO INCREASED [None]
